FAERS Safety Report 11388842 (Version 1)
Quarter: 2015Q3

REPORT INFORMATION
  Report Type: Spontaneous
  Country: US (occurrence: US)
  Receive Date: 20150811
  Receipt Date: 20150811
  Transmission Date: 20151125
  Serious: Yes (Other)
  Sender: FDA-Public Use
  Company Number: US-APOTEX-2015AP007136

PATIENT
  Sex: Female

DRUGS (2)
  1. PAXIL [Suspect]
     Active Substance: PAROXETINE HYDROCHLORIDE
     Indication: DEPRESSION
     Dosage: 20 MG, QD
     Route: 065
     Dates: start: 1999, end: 2003
  2. PRENATAL VITAMINS                  /07426201/ [Concomitant]
     Active Substance: ASCORBIC ACID\BIOTIN\MINERALS\NIACIN\RETINOL\TOCOPHEROL\VITAMIN B\VITAMIN D
     Indication: PRODUCT USED FOR UNKNOWN INDICATION
     Route: 065

REACTIONS (2)
  - Foetal death [Unknown]
  - Abdominal pain [Unknown]
